FAERS Safety Report 24279294 (Version 1)
Quarter: 2024Q3

REPORT INFORMATION
  Report Type: Spontaneous
  Country: US (occurrence: US)
  Receive Date: 20240903
  Receipt Date: 20240903
  Transmission Date: 20241017
  Serious: No
  Sender: COVIS PHARMA
  Company Number: US-Covis Pharma GmbH-2024COV01043

PATIENT
  Age: 11 Year
  Sex: Male

DRUGS (1)
  1. ALVESCO [Suspect]
     Active Substance: CICLESONIDE
     Indication: Asthma
     Route: 055

REACTIONS (3)
  - Asthma [Unknown]
  - Product dose omission issue [Unknown]
  - Off label use [Unknown]
